FAERS Safety Report 14308884 (Version 1)
Quarter: 2017Q4

REPORT INFORMATION
  Report Type: Spontaneous
  Country: US (occurrence: US)
  Receive Date: 20171220
  Receipt Date: 20171220
  Transmission Date: 20180321
  Serious: No
  Sender: FDA-Public Use
  Company Number: US-GLAXOSMITHKLINE-US2017194510

PATIENT
  Age: 71 Year
  Sex: Male

DRUGS (4)
  1. ALBUTEROL. [Concomitant]
     Active Substance: ALBUTEROL
  2. DAYQUIL (ACETAMINOPHEN + DEXTROMETHORPHAN + PHENYLEPHRINE HYDROCHLORID [Concomitant]
  3. TRELEGY ELLIPTA [Suspect]
     Active Substance: FLUTICASONE FUROATE\UMECLIDINIUM BROMIDE\VILANTEROL TRIFENATATE
     Indication: ASTHMA
     Dosage: 1 PUFF(S), QD
     Route: 055
     Dates: start: 20171212
  4. NYQUIL (ACETAMINOPHEN/DEXTROMETHORPHAN/DOXYLAMINE SUCCINATE/PSEUDOEPHE [Concomitant]

REACTIONS (4)
  - Wheezing [Not Recovered/Not Resolved]
  - Product use in unapproved indication [Not Recovered/Not Resolved]
  - Cough [Not Recovered/Not Resolved]
  - Overdose [Unknown]

NARRATIVE: CASE EVENT DATE: 20171212
